FAERS Safety Report 10100798 (Version 1)
Quarter: 2014Q2

REPORT INFORMATION
  Report Type: Report from Study
  Country: US (occurrence: US)
  Receive Date: 20140423
  Receipt Date: 20140423
  Transmission Date: 20141212
  Serious: Yes (Other)
  Sender: FDA-Public Use
  Company Number: US-BAXTER-2014BAX019620

PATIENT
  Sex: 0

DRUGS (2)
  1. GAMMAGARD LIQUID [Suspect]
     Indication: CROHN^S DISEASE
     Dosage: 0.4 G/KG TIMES 3
     Route: 042
  2. GAMMAGARD LIQUID [Suspect]
     Indication: OFF LABEL USE
     Dosage: 0.4 G/KG
     Route: 042

REACTIONS (1)
  - Drug ineffective [Unknown]
